FAERS Safety Report 10382576 (Version 1)
Quarter: 2014Q3

REPORT INFORMATION
  Report Type: Spontaneous
  Country: US (occurrence: US)
  Receive Date: 20140813
  Receipt Date: 20140813
  Transmission Date: 20150326
  Serious: No
  Sender: FDA-Public Use
  Company Number: US-SA-2013SA102510

PATIENT
  Age: 56 Year
  Sex: Male

DRUGS (1)
  1. MULTAQ [Suspect]
     Active Substance: DRONEDARONE
     Indication: ATRIAL FIBRILLATION
     Dosage: TAKEN FROM:1.5 YEARS AGO?TAKEN TO:~2 WEEKS AGO
     Route: 065

REACTIONS (6)
  - Headache [Not Recovered/Not Resolved]
  - Vitreous floaters [Not Recovered/Not Resolved]
  - Dizziness [Not Recovered/Not Resolved]
  - Chest discomfort [Recovering/Resolving]
  - Muscle tightness [Recovering/Resolving]
  - Wrong technique in drug usage process [Unknown]
